FAERS Safety Report 6960212-X (Version None)
Quarter: 2010Q3

REPORT INFORMATION
  Report Type: 
  Country: None (occurrence: None)
  Receive Date: 20100901
  Receipt Date: 20100826
  Transmission Date: 20110219
  Serious: Yes (Life-Threatening)
  Sender: FDA-Public Use
  Company Number: GB-CELGENEUS-167-C5013-10082767

PATIENT
  Sex: Female
  Weight: 37.7 kg

DRUGS (17)
  1. LENALIDOMIDE [Suspect]
     Indication: MULTIPLE MYELOMA
     Route: 048
     Dates: start: 20100727
  2. LENALIDOMIDE [Suspect]
     Route: 048
  3. DEXAMETHASONE [Suspect]
     Indication: MULTIPLE MYELOMA
     Route: 065
     Dates: start: 20100727
  4. DEXAMETHASONE [Suspect]
     Route: 065
  5. ACYCLOVIR SODIUM [Concomitant]
     Indication: ANTIVIRAL PROPHYLAXIS
     Route: 048
     Dates: start: 20100727
  6. FLUCONAZOLE [Concomitant]
     Indication: ANTIFUNGAL PROPHYLAXIS
     Route: 048
     Dates: start: 20100727
  7. COTRIM [Concomitant]
     Indication: PROPHYLAXIS
     Route: 048
     Dates: start: 20100727
  8. OMEPRAZOLE [Concomitant]
     Indication: GASTRITIS PROPHYLAXIS
     Route: 048
     Dates: start: 20100727
  9. ASPIRINE [Concomitant]
     Indication: THROMBOSIS PROPHYLAXIS
     Route: 048
     Dates: start: 20100727
  10. DOMPERIDONE [Concomitant]
     Route: 048
     Dates: start: 20100727
  11. VENTOLIN [Concomitant]
     Indication: ASTHMA
     Route: 048
     Dates: start: 19800101
  12. ACETAMINOPHEN [Concomitant]
     Indication: BACK PAIN
     Route: 048
     Dates: start: 20100310
  13. STEMETIL [Concomitant]
     Indication: NAUSEA
     Route: 048
     Dates: start: 20100301
  14. VITAMIN B-12 [Concomitant]
     Indication: VITAMIN B12 DEFICIENCY
     Route: 051
     Dates: start: 20090201
  15. DOXYCYCLINE [Concomitant]
     Indication: UPPER RESPIRATORY TRACT INFECTION
     Route: 065
     Dates: start: 20100809, end: 20100818
  16. SEPTRIN [Concomitant]
     Indication: ANTIBIOTIC PROPHYLAXIS
     Route: 065
     Dates: start: 20100727
  17. SENNA [Concomitant]
     Indication: CONSTIPATION
     Route: 048

REACTIONS (3)
  - LOWER RESPIRATORY TRACT INFECTION [None]
  - PULMONARY EMBOLISM [None]
  - RESPIRATORY FAILURE [None]
